FAERS Safety Report 5208409-3 (Version None)
Quarter: 2007Q1

REPORT INFORMATION
  Report Type: 
  Country: None (occurrence: None)
  Receive Date: 20070115
  Receipt Date: 20070108
  Transmission Date: 20070707
  Serious: Yes (Hospitalization)
  Sender: FDA-Public Use
  Company Number: US-SHR-US-2006-035923

PATIENT
  Age: 53 Year
  Sex: Female
  Weight: 68 kg

DRUGS (12)
  1. BETASERON [Suspect]
     Indication: RELAPSING-REMITTING MULTIPLE SCLEROSIS
     Dosage: 8 MIU, EVERY 2D
     Route: 058
     Dates: start: 20040519
  2. LIPITOR                                 /NET/ [Concomitant]
     Dosage: 80 MG, 1X/DAY
  3. METOPROLOL SUCCINATE [Concomitant]
     Dosage: 25 MG, 1X/DAY
  4. PAROXETINE HCL [Concomitant]
     Dosage: 20 MG, 1X/DAY
  5. BENAZEPRIL HYDROCHLORIDE [Concomitant]
     Dosage: 5 MG, 1X/DAY
  6. OMEPRAZOLE [Concomitant]
     Dosage: 20 MG, 1X/DAY
  7. METFORMIN HCL [Concomitant]
     Dosage: 500 MG, 1X/DAY
  8. IMDUR [Concomitant]
     Dosage: 15 MG, 2X/DAY
  9. ACTOS                                   /USA/ [Concomitant]
     Dosage: 7.5 MG, 1X/DAY
  10. ZETIA [Concomitant]
     Dosage: 10 MG, 1X/DAY
  11. ASPIRIN [Concomitant]
     Dosage: 325 MG, 1X/DAY
  12. ASCORBIC ACID [Concomitant]
     Dosage: 500 MG, 1X/DAY

REACTIONS (2)
  - CORONARY ARTERY OCCLUSION [None]
  - DIABETES MELLITUS [None]
